FAERS Safety Report 19728371 (Version 5)
Quarter: 2022Q3

REPORT INFORMATION
  Report Type: Report from Study
  Country: AT (occurrence: AT)
  Receive Date: 20210820
  Receipt Date: 20220708
  Transmission Date: 20221026
  Serious: Yes (Death, Other)
  Sender: FDA-Public Use
  Company Number: AT-NOVARTISPH-NVSC2021AT181331

PATIENT
  Age: 69 Year
  Sex: Female
  Weight: 53 kg

DRUGS (6)
  1. CAPMATINIB [Suspect]
     Active Substance: CAPMATINIB
     Indication: Malignant neoplasm of unknown primary site
     Dosage: 400 MG, BID
     Route: 048
     Dates: start: 20210616, end: 20210629
  2. CAPMATINIB [Suspect]
     Active Substance: CAPMATINIB
     Dosage: 200 MG, BID
     Route: 065
  3. OSIMERTINIB [Concomitant]
     Active Substance: OSIMERTINIB
     Indication: EGFR gene mutation
     Dosage: 80 MG, QD
     Route: 065
     Dates: start: 20190408, end: 20210629
  4. SITAGLIPTIN [Concomitant]
     Active Substance: SITAGLIPTIN
     Indication: Diabetes mellitus
     Dosage: 100 MG, QD
     Route: 065
     Dates: start: 2019, end: 20190629
  5. METHYLPREDNISOLONE [Concomitant]
     Active Substance: METHYLPREDNISOLONE
     Indication: Product used for unknown indication
     Dosage: 40 MG
     Route: 065
     Dates: start: 20220209
  6. METHYLPREDNISOLONE [Concomitant]
     Active Substance: METHYLPREDNISOLONE
     Dosage: 10 MG
     Route: 065
     Dates: start: 20220301

REACTIONS (6)
  - Malignant neoplasm of unknown primary site [Fatal]
  - Malignant neoplasm progression [Fatal]
  - Leukopenia [Recovered/Resolved]
  - Pneumonitis [Unknown]
  - Tachycardia [Unknown]
  - Dyspnoea [Unknown]

NARRATIVE: CASE EVENT DATE: 20210629
